FAERS Safety Report 14989735 (Version 13)
Quarter: 2020Q4

REPORT INFORMATION
  Report Type: Report from Study
  Country: CA (occurrence: CA)
  Receive Date: 20180608
  Receipt Date: 20201006
  Transmission Date: 20210113
  Serious: Yes (Hospitalization, Other)
  Sender: FDA-Public Use
  Company Number: PHHY2015CA172491

PATIENT
  Age: 43 Year
  Sex: Female

DRUGS (8)
  1. SANDOSTATIN [Suspect]
     Active Substance: OCTREOTIDE ACETATE
  2. SANDOSTATIN LAR DEPOT [Suspect]
     Active Substance: OCTREOTIDE ACETATE
     Indication: CARCINOID TUMOUR
     Dosage: 30 MG, Q3W (EVERY 3WEEKS)
     Route: 030
     Dates: start: 20151231
  3. HYDROMORPHONE [Concomitant]
     Active Substance: HYDROMORPHONE
     Indication: PRODUCT USED FOR UNKNOWN INDICATION
     Dosage: 2 MG ((EVERY 4 HOURS))
     Route: 065
  4. SANDOSTATIN [Suspect]
     Active Substance: OCTREOTIDE ACETATE
     Indication: CARCINOID TUMOUR
     Dosage: 50 UG, ONCE/SINGLE
     Route: 058
     Dates: start: 20151218, end: 20151218
  5. TYLENOL [Concomitant]
     Active Substance: ACETAMINOPHEN
     Indication: PRODUCT USED FOR UNKNOWN INDICATION
     Dosage: 2 DF ((EVERY 4 HOURS))
     Route: 065
  6. SANDOSTATIN [Suspect]
     Active Substance: OCTREOTIDE ACETATE
  7. SANDOSTATIN LAR DEPOT [Suspect]
     Active Substance: OCTREOTIDE ACETATE
  8. SANDOSTATIN LAR DEPOT [Suspect]
     Active Substance: OCTREOTIDE ACETATE
     Dosage: 30 MG, Q3W (EVERY 3 WEEKS)
     Route: 030
     Dates: start: 20171124

REACTIONS (28)
  - Illness [Unknown]
  - Dizziness [Not Recovered/Not Resolved]
  - Blood pressure increased [Unknown]
  - Blood pressure diastolic decreased [Unknown]
  - Sleep apnoea syndrome [Unknown]
  - Malignant neoplasm progression [Unknown]
  - Vomiting [Unknown]
  - Inappropriate schedule of product administration [Unknown]
  - Pain [Unknown]
  - Rhinorrhoea [Unknown]
  - Diarrhoea [Unknown]
  - Cough [Unknown]
  - Thyroid mass [Unknown]
  - Chest pain [Recovering/Resolving]
  - Flushing [Unknown]
  - Dyspnoea [Recovering/Resolving]
  - Abdominal pain [Recovering/Resolving]
  - Dizziness [Recovered/Resolved]
  - Influenza [Recovered/Resolved]
  - Nausea [Not Recovered/Not Resolved]
  - Rhinorrhoea [Unknown]
  - Carcinoid tumour [Unknown]
  - Headache [Unknown]
  - Oropharyngeal pain [Unknown]
  - Abdominal discomfort [Unknown]
  - Nasopharyngitis [Unknown]
  - Fatigue [Not Recovered/Not Resolved]
  - Asthenia [Unknown]

NARRATIVE: CASE EVENT DATE: 20151231
